FAERS Safety Report 9448900 (Version 2)
Quarter: 2013Q4

REPORT INFORMATION
  Report Type: Spontaneous
  Country: PT (occurrence: PT)
  Receive Date: 20130808
  Receipt Date: 20131024
  Transmission Date: 20140711
  Serious: Yes (Hospitalization, Other)
  Sender: FDA-Public Use
  Company Number: PT-PFIZER INC-2013225072

PATIENT
  Age: 62 Year
  Sex: Male

DRUGS (11)
  1. XALKORI [Suspect]
     Indication: LUNG ADENOCARCINOMA STAGE IV
     Dosage: 250 MG, 2X/DAY
     Route: 048
     Dates: start: 20130621, end: 20130719
  2. PERINDOPRIL [Concomitant]
  3. INDAPAMIDE [Concomitant]
  4. SOCIAN [Concomitant]
  5. CORDARONE [Concomitant]
  6. PITAVASTATIN [Concomitant]
  7. SPIRIVA [Concomitant]
  8. ACETAMINOPHEN [Concomitant]
  9. IBUPROFEN [Concomitant]
  10. PANTOPRAZOL [Concomitant]
  11. INDACATEROL [Concomitant]

REACTIONS (4)
  - Gamma-glutamyltransferase increased [Recovered/Resolved]
  - Blood alkaline phosphatase increased [Recovered/Resolved]
  - Pleural effusion [Not Recovered/Not Resolved]
  - Infectious pleural effusion [Recovered/Resolved]
